FAERS Safety Report 8118399-1 (Version None)
Quarter: 2012Q1

REPORT INFORMATION
  Report Type: 
  Country: None (occurrence: None)
  Receive Date: 20120207
  Receipt Date: 20120203
  Transmission Date: 20120608
  Serious: Yes (Death)
  Sender: FDA-Public Use
  Company Number: US-JNJFOC-20120202885

PATIENT
  Age: 75 Year

DRUGS (3)
  1. HEPARIN [Suspect]
     Indication: MYOCARDIAL INFARCTION
     Route: 065
  2. ANGIOMAX [Suspect]
     Indication: MYOCARDIAL INFARCTION
     Route: 065
  3. REOPRO [Suspect]
     Indication: MYOCARDIAL INFARCTION
     Dosage: FULL BOLUS ADMINISTERED IN JAN (UNSPECIFIED YEAR) FOR 1 DAY
     Route: 041

REACTIONS (1)
  - PULMONARY HAEMORRHAGE [None]
